FAERS Safety Report 19849855 (Version 1)
Quarter: 2021Q3

REPORT INFORMATION
  Report Type: Spontaneous
  Country: RU (occurrence: RU)
  Receive Date: 20210917
  Receipt Date: 20210917
  Transmission Date: 20211014
  Serious: Yes (Other)
  Sender: FDA-Public Use
  Company Number: RU-ASTRAZENECA-2021A725711

PATIENT
  Age: 67 Year
  Sex: Female

DRUGS (2)
  1. OLAPARIB. [Suspect]
     Active Substance: OLAPARIB
     Indication: OVARIAN CANCER
     Route: 048
     Dates: start: 20210301, end: 20210830
  2. CHEMOTHERAPY [Concomitant]
     Active Substance: UNSPECIFIED INGREDIENT
     Dosage: 3 COURSES
     Dates: end: 202011

REACTIONS (1)
  - Hypersensitivity pneumonitis [Not Recovered/Not Resolved]

NARRATIVE: CASE EVENT DATE: 20210831
